FAERS Safety Report 6752492-0 (Version None)
Quarter: 2010Q2

REPORT INFORMATION
  Report Type: 
  Country: None (occurrence: None)
  Receive Date: 20100601
  Receipt Date: 20100601
  Transmission Date: 20101027
  Serious: Yes (Other)
  Sender: FDA-Public Use
  Company Number: None

PATIENT
  Age: 53 Year
  Sex: Male
  Weight: 111.1313 kg

DRUGS (1)
  1. ACTOS [Suspect]

REACTIONS (2)
  - DYSPNOEA [None]
  - WEIGHT INCREASED [None]
